FAERS Safety Report 23273776 (Version 1)
Quarter: 2023Q4

REPORT INFORMATION
  Report Type: Report from Study
  Country: US (occurrence: US)
  Receive Date: 20231207
  Receipt Date: 20231207
  Transmission Date: 20240109
  Serious: Yes (Other)
  Sender: FDA-Public Use
  Company Number: US-ABBVIE-5524664

PATIENT
  Age: 63 Year
  Sex: Female

DRUGS (1)
  1. HUMIRA [Suspect]
     Active Substance: ADALIMUMAB
     Indication: Rheumatoid arthritis
     Dosage: FORM STRENGTH UNITS:40 MILLIGRAM
     Route: 058

REACTIONS (3)
  - Ankle fracture [Recovering/Resolving]
  - Allergy to metals [Recovering/Resolving]
  - Medical device implantation [Recovering/Resolving]

NARRATIVE: CASE EVENT DATE: 20230901
